FAERS Safety Report 6830621-8 (Version None)
Quarter: 2010Q3

REPORT INFORMATION
  Report Type: 
  Country: None (occurrence: None)
  Receive Date: 20100709
  Receipt Date: 20100709
  Transmission Date: 20110219
  Serious: Yes (Other)
  Sender: FDA-Public Use
  Company Number: None

PATIENT
  Sex: Female
  Weight: 48.0813 kg

DRUGS (1)
  1. LOVASTATIN [Suspect]
     Indication: HYPERTENSION
     Dosage: 20MG ML20 1 A DAY
     Dates: start: 20100227

REACTIONS (4)
  - AGGRESSION [None]
  - ALOPECIA [None]
  - COUGH [None]
  - THYROID DISORDER [None]
